FAERS Safety Report 14394178 (Version 1)
Quarter: 2018Q1

REPORT INFORMATION
  Report Type: Spontaneous
  Country: US (occurrence: US)
  Receive Date: 20180116
  Receipt Date: 20180116
  Transmission Date: 20180509
  Serious: No
  Sender: FDA-Public Use
  Company Number: US-009507513-1801USA004501

PATIENT
  Age: 17 Year
  Sex: Female
  Weight: 72.56 kg

DRUGS (1)
  1. NEXPLANON [Suspect]
     Active Substance: ETONOGESTREL
     Indication: MENSTRUAL CYCLE MANAGEMENT
     Dosage: 1 IMPLANT, EVERY 3 YEARS
     Route: 059
     Dates: start: 20150407

REACTIONS (14)
  - Urinary tract infection [Not Recovered/Not Resolved]
  - Decreased appetite [Not Recovered/Not Resolved]
  - Hair growth abnormal [Unknown]
  - Feeling abnormal [Unknown]
  - Fungal infection [Not Recovered/Not Resolved]
  - Vaginal infection [Not Recovered/Not Resolved]
  - Abdominal pain [Not Recovered/Not Resolved]
  - Acne [Not Recovered/Not Resolved]
  - Limb discomfort [Unknown]
  - Menstruation irregular [Not Recovered/Not Resolved]
  - Back pain [Not Recovered/Not Resolved]
  - Fatigue [Not Recovered/Not Resolved]
  - Product use in unapproved indication [Unknown]
  - Contusion [Unknown]

NARRATIVE: CASE EVENT DATE: 20150407
